FAERS Safety Report 16440382 (Version 1)
Quarter: 2019Q2

REPORT INFORMATION
  Report Type: Report from Study
  Country: US (occurrence: US)
  Receive Date: 20190617
  Receipt Date: 20190617
  Transmission Date: 20190711
  Serious: Yes (Hospitalization)
  Sender: FDA-Public Use
  Company Number: US-PFIZER INC-2019255130

PATIENT
  Age: 72 Year
  Sex: Male
  Weight: 67 kg

DRUGS (20)
  1. AVELUMAB [Suspect]
     Active Substance: AVELUMAB
     Indication: THYMIC CANCER METASTATIC
     Dosage: 746 MG, CYCLIC (ONCE EVERY 2 WEEKS)
     Route: 042
     Dates: start: 20180314, end: 20190214
  2. MORPHINE [MORPHINE SULFATE] [Concomitant]
     Dosage: 15 MG, 2X/DAY
  3. XANAX [Concomitant]
     Active Substance: ALPRAZOLAM
     Dosage: 0.25 MG, UNK
     Dates: end: 20190529
  4. PANTOPRAZOLE [Concomitant]
     Active Substance: PANTOPRAZOLE
     Dosage: 40 MG, 2X/DAY
  5. LATANOPROST. [Concomitant]
     Active Substance: LATANOPROST
     Indication: GLAUCOMA
     Dosage: 1 DROP BOTH EYES DAILY
     Route: 047
  6. GABAPENTIN. [Suspect]
     Active Substance: GABAPENTIN
     Dosage: 900 MG, 2X/DAY
     Dates: start: 20190529
  7. SYNTHROID [Concomitant]
     Active Substance: LEVOTHYROXINE SODIUM
     Dosage: 137 UG, 1X/DAY
     Route: 048
  8. MIRALAX [Concomitant]
     Active Substance: POLYETHYLENE GLYCOL 3350
     Dosage: UNK
  9. GABAPENTIN. [Suspect]
     Active Substance: GABAPENTIN
     Dosage: 300 MG, 3X/DAY (ONCE EVERY 8 HOURS)
  10. MIRTAZAPINE. [Suspect]
     Active Substance: MIRTAZAPINE
     Dosage: 7.5 MG, 1X/DAY
  11. SUCRALFATE. [Concomitant]
     Active Substance: SUCRALFATE
     Indication: GASTROOESOPHAGEAL REFLUX DISEASE
     Dosage: 1 G PER 10 ML TAKING 10 ML EVERY 6 HOURS AS NEEDED
  12. LEXAPRO [Concomitant]
     Active Substance: ESCITALOPRAM OXALATE
     Dosage: 20 MG, UNK
  13. MIRTAZAPINE. [Suspect]
     Active Substance: MIRTAZAPINE
     Dosage: 15 MG, 1X/DAY
     Dates: start: 20190529
  14. FINASTERIDE. [Concomitant]
     Active Substance: FINASTERIDE
     Dosage: 5 MG, UNK
  15. COLACE [Concomitant]
     Active Substance: DOCUSATE SODIUM
     Dosage: 2 TABS. BID
  16. MARINOL [Suspect]
     Active Substance: DRONABINOL
     Dosage: 5 MG, 2X/DAY (ONCE EVERY 12 HOURS)
  17. MARINOL [Suspect]
     Active Substance: DRONABINOL
     Dosage: 10 MG, 2X/DAY (ONCE EVERY 2 WEEKS)
     Dates: start: 20190529
  18. OXYCODONE [Concomitant]
     Active Substance: OXYCODONE
     Dosage: 10 - 15 MG AS NEEDED
     Route: 048
  19. SENNA [SENNA ALEXANDRINA] [Concomitant]
     Active Substance: SENNA LEAF
     Dosage: 2 TABS, BID
  20. BISACODYL. [Concomitant]
     Active Substance: BISACODYL
     Dosage: 10 MG, AS NEEDED
     Route: 054

REACTIONS (1)
  - Delirium [Not Recovered/Not Resolved]

NARRATIVE: CASE EVENT DATE: 20190603
